FAERS Safety Report 8948091 (Version 3)
Quarter: 2013Q3

REPORT INFORMATION
  Report Type: Spontaneous
  Country: US (occurrence: US)
  Receive Date: 20121204
  Receipt Date: 20130906
  Transmission Date: 20140515
  Serious: Yes (Death, Hospitalization)
  Sender: FDA-Public Use
  Company Number: US-GLAXOSMITHKLINE-A1003797A

PATIENT
  Age: 64 Year
  Sex: Male

DRUGS (1)
  1. AVODART [Suspect]
     Indication: BENIGN PROSTATIC HYPERPLASIA
     Dosage: .5MG UNKNOWN
     Route: 048
     Dates: start: 200810, end: 201001

REACTIONS (5)
  - Prostate cancer [Fatal]
  - Metastases to lymph nodes [Unknown]
  - Metastases to bone [Unknown]
  - Brain compression [Fatal]
  - Subdural haematoma [Fatal]
